FAERS Safety Report 7763191-0 (Version None)
Quarter: 2011Q3

REPORT INFORMATION
  Report Type: 
  Country: None (occurrence: None)
  Receive Date: 20110920
  Receipt Date: 20110912
  Transmission Date: 20111222
  Serious: Yes (Other)
  Sender: FDA-Public Use
  Company Number: PHEH2007US06797

PATIENT
  Sex: Male

DRUGS (14)
  1. CLINDAMYCIN [Concomitant]
     Dosage: 300 MG, UNK
     Dates: start: 20040101
  2. TAXOTERE [Concomitant]
  3. EMCYT [Concomitant]
  4. VICODIN [Concomitant]
  5. ANTIBIOTICS [Concomitant]
     Route: 042
     Dates: end: 20050421
  6. ZOMETA [Suspect]
     Indication: PROSTATE CANCER
     Dosage: 4 MG, QOD
     Route: 042
     Dates: start: 20030301, end: 20050101
  7. PERIDEX [Concomitant]
     Dates: start: 20040101
  8. DEXAMETHASONE [Concomitant]
  9. AREDIA [Suspect]
  10. BUMETANIDE [Concomitant]
  11. PROTONIX [Concomitant]
  12. PENICILLIN [Concomitant]
  13. PROSCAR [Concomitant]
  14. LUPRON [Concomitant]

REACTIONS (36)
  - CARDIAC DISORDER [None]
  - DEEP VEIN THROMBOSIS [None]
  - IMPAIRED HEALING [None]
  - BACTERIAL TEST [None]
  - STOMATITIS [None]
  - TOOTH ABSCESS [None]
  - PARAESTHESIA [None]
  - OSTEOLYSIS [None]
  - OSTEOMYELITIS CHRONIC [None]
  - GINGIVAL SWELLING [None]
  - THROMBOSIS [None]
  - DISCOMFORT [None]
  - BACTERIAL DISEASE CARRIER [None]
  - CONFUSIONAL STATE [None]
  - GENERAL PHYSICAL HEALTH DETERIORATION [None]
  - PAIN [None]
  - PAIN IN JAW [None]
  - TOOTH INFECTION [None]
  - PATHOLOGICAL FRACTURE [None]
  - ANAEMIA [None]
  - LIPOMA [None]
  - DEAFNESS [None]
  - ANXIETY [None]
  - GOUT [None]
  - HEPATITIS [None]
  - OSTEONECROSIS OF JAW [None]
  - BONE DISORDER [None]
  - TOOTH DISORDER [None]
  - OSTEOMYELITIS [None]
  - TOOTHACHE [None]
  - GLAUCOMA [None]
  - SOFT TISSUE DISORDER [None]
  - EAR PAIN [None]
  - METASTASES TO BONE [None]
  - BONE EROSION [None]
  - HAEMATURIA [None]
